FAERS Safety Report 14300560 (Version 1)
Quarter: 2017Q4

REPORT INFORMATION
  Report Type: Spontaneous
  Country: US (occurrence: US)
  Receive Date: 20171218
  Receipt Date: 20171218
  Transmission Date: 20180321
  Serious: Yes (Death)
  Sender: FDA-Public Use
  Company Number: None

PATIENT
  Sex: Female
  Weight: 86.18 kg

DRUGS (4)
  1. FORTEO [Suspect]
     Active Substance: TERIPARATIDE
     Indication: VITAMIN D DEFICIENCY
  2. FORTEO [Suspect]
     Active Substance: TERIPARATIDE
     Indication: OSTEOPOROSIS
  3. FORTEO [Suspect]
     Active Substance: TERIPARATIDE
     Indication: HYPOTHYROIDISM
  4. FORTEO [Suspect]
     Active Substance: TERIPARATIDE
     Indication: BONE DISORDER

REACTIONS (1)
  - Death [None]
